FAERS Safety Report 10066947 (Version 5)
Quarter: 2014Q2

REPORT INFORMATION
  Report Type: Report from Study
  Country: JP (occurrence: JP)
  Receive Date: 20140409
  Receipt Date: 20140610
  Transmission Date: 20141212
  Serious: Yes (Hospitalization, Other)
  Sender: FDA-Public Use
  Company Number: PHHY2013JP155971

PATIENT
  Age: 57 Year
  Sex: Female

DRUGS (12)
  1. GLIVEC [Suspect]
     Indication: CHRONIC MYELOID LEUKAEMIA
     Dosage: 400 MG, DAILY
     Route: 048
     Dates: start: 20120704, end: 20120725
  2. GLIVEC [Suspect]
     Dosage: 100 MG, DAILY
     Route: 048
     Dates: start: 20120806, end: 20121002
  3. GLIVEC [Suspect]
     Dosage: 200 MG, DAILY
     Route: 048
     Dates: start: 20121003, end: 20121121
  4. GLIVEC [Suspect]
     Dosage: 200 MG, DAILY
     Route: 048
     Dates: start: 20121219, end: 20130116
  5. GLIVEC [Suspect]
     Dosage: 200 MG, QD
     Route: 048
     Dates: start: 20130211, end: 20131122
  6. GLIVEC [Suspect]
     Dosage: UNK UKN, UNK
  7. BLOPRESS [Concomitant]
     Dosage: UNK UKN, UNK
     Route: 048
  8. GASTER [Concomitant]
     Dosage: UNK UKN, UNK
  9. ADALAT [Concomitant]
     Dosage: UNK UKN, UNK
     Route: 048
  10. LIVALO [Concomitant]
     Dosage: UNK UKN, UNK
     Route: 048
  11. MAINTATE [Concomitant]
     Dosage: UNK UKN, UNK
     Route: 048
  12. BAYASPIRIN [Concomitant]
     Dosage: UNK UKN, UNK
     Route: 048

REACTIONS (2)
  - Epilepsy [Unknown]
  - Electrocardiogram QT prolonged [Recovering/Resolving]
